FAERS Safety Report 7401657-3 (Version None)
Quarter: 2011Q2

REPORT INFORMATION
  Report Type: 
  Country: None (occurrence: None)
  Receive Date: 20110408
  Receipt Date: 20081009
  Transmission Date: 20111010
  Serious: No
  Sender: FDA-Public Use
  Company Number: 2008BI027199

PATIENT
  Sex: Female

DRUGS (1)
  1. TYSABRI [Suspect]
     Indication: MULTIPLE SCLEROSIS
     Route: 042
     Dates: start: 20080411

REACTIONS (10)
  - MULTIPLE ALLERGIES [None]
  - HEADACHE [None]
  - VIRAL INFECTION [None]
  - MENSTRUATION IRREGULAR [None]
  - GALLBLADDER OPERATION [None]
  - PAIN [None]
  - SINUSITIS [None]
  - PYREXIA [None]
  - HYPERAESTHESIA [None]
  - OROPHARYNGEAL PAIN [None]
